FAERS Safety Report 8176660-9 (Version None)
Quarter: 2012Q1

REPORT INFORMATION
  Report Type: 
  Country: None (occurrence: None)
  Receive Date: 20120301
  Receipt Date: 20120222
  Transmission Date: 20120608
  Serious: Yes (Hospitalization, Other)
  Sender: FDA-Public Use
  Company Number: US-JNJFOC-20120108529

PATIENT
  Sex: Female
  Weight: 122.47 kg

DRUGS (19)
  1. EXTRA STRENGTH TYLENOL [Suspect]
     Route: 048
     Dates: start: 19840101, end: 20110101
  2. EXTRA STRENGTH TYLENOL [Suspect]
     Indication: BACK INJURY
     Route: 048
     Dates: start: 19840101, end: 20110101
  3. EXTRA STRENGTH TYLENOL PM [Suspect]
     Indication: ARTHRITIS
     Route: 048
     Dates: start: 19840101, end: 20110101
  4. EXTRA STRENGTH TYLENOL PM [Suspect]
     Indication: PAIN
     Route: 048
     Dates: start: 19840101, end: 20110101
  5. TYLENOL (CAPLET) [Suspect]
     Indication: BACK INJURY
     Route: 048
     Dates: start: 19840101, end: 20110101
  6. EXTRA STRENGTH TYLENOL [Suspect]
     Indication: PAIN
     Route: 048
     Dates: start: 19840101, end: 20110101
  7. EXTRA STRENGTH TYLENOL [Suspect]
     Route: 048
     Dates: start: 19840101, end: 20110101
  8. TYLENOL-500 [Suspect]
     Indication: BACK INJURY
     Route: 048
     Dates: start: 19840101, end: 20110101
  9. EXTRA STRENGTH TYLENOL PM [Suspect]
     Indication: BACK INJURY
     Route: 048
     Dates: start: 19840101, end: 20110101
  10. TYLENOL (CAPLET) [Suspect]
     Indication: ARTHRITIS
     Route: 048
     Dates: start: 19840101, end: 20110101
  11. EXTRA STRENGTH TYLENOL [Suspect]
     Indication: BACK INJURY
     Route: 048
     Dates: start: 19840101, end: 20110101
  12. EXTRA STRENGTH TYLENOL [Suspect]
     Route: 048
     Dates: start: 19840101, end: 20110101
  13. TYLENOL-500 [Suspect]
     Indication: ARTHRITIS
     Route: 048
     Dates: start: 19840101, end: 20110101
  14. EXTRA STRENGTH TYLENOL [Suspect]
     Indication: PAIN
     Route: 048
     Dates: start: 19840101, end: 20110101
  15. EXTRA STRENGTH TYLENOL [Suspect]
     Indication: ARTHRITIS
     Route: 048
     Dates: start: 19840101, end: 20110101
  16. TYLENOL-500 [Suspect]
     Indication: PAIN
     Route: 048
     Dates: start: 19840101, end: 20110101
  17. TYLENOL (CAPLET) [Suspect]
     Indication: PAIN
     Route: 048
     Dates: start: 19840101, end: 20110101
  18. EXTRA STRENGTH TYLENOL [Suspect]
     Indication: ARTHRITIS
     Route: 048
     Dates: start: 19840101, end: 20110101
  19. DICLOFENAC SODIUM [Concomitant]
     Indication: INFLAMMATION
     Route: 065
     Dates: start: 19950101

REACTIONS (6)
  - WEIGHT INCREASED [None]
  - HEPATITIS [None]
  - SWELLING [None]
  - FATIGUE [None]
  - MULTIPLE DRUG OVERDOSE [None]
  - DRUG ADMINISTRATION ERROR [None]
